FAERS Safety Report 21847921 (Version 1)
Quarter: 2023Q1

REPORT INFORMATION
  Report Type: Spontaneous
  Country: US (occurrence: US)
  Receive Date: 20230111
  Receipt Date: 20230111
  Transmission Date: 20230417
  Serious: Yes (Other)
  Sender: FDA-Public Use
  Company Number: US-002147023-NVSC2023US004553

PATIENT
  Sex: Male

DRUGS (1)
  1. TOBRAMYCIN [Suspect]
     Active Substance: TOBRAMYCIN
     Indication: Product used for unknown indication
     Dosage: 1 DRP, TID (5 ML LDP US, IN EACH EYE)
     Route: 047
     Dates: start: 20230105, end: 20230105

REACTIONS (3)
  - Seizure [Unknown]
  - Loss of consciousness [Unknown]
  - Intentional product use issue [Unknown]
